FAERS Safety Report 22261133 (Version 1)
Quarter: 2023Q2

REPORT INFORMATION
  Report Type: Spontaneous
  Country: CA (occurrence: CA)
  Receive Date: 20230427
  Receipt Date: 20230427
  Transmission Date: 20230722
  Serious: Yes (Death, Other)
  Sender: FDA-Public Use
  Company Number: CA-BAUSCH-BL-2023-006496

PATIENT
  Age: 54 Year
  Sex: Male

DRUGS (13)
  1. BUPROPION HYDROCHLORIDE [Interacting]
     Active Substance: BUPROPION HYDROCHLORIDE
     Indication: Bipolar disorder
     Route: 065
  2. ATAZANAVIR SULFATE [Suspect]
     Active Substance: ATAZANAVIR SULFATE
     Indication: HIV infection
     Route: 005
  3. CLONAZEPAM [Suspect]
     Active Substance: CLONAZEPAM
     Indication: HIV infection
     Route: 005
  4. EFAVIRENZ [Suspect]
     Active Substance: EFAVIRENZ
     Indication: Product used for unknown indication
     Route: 065
  5. ISENTRESS [Suspect]
     Active Substance: RALTEGRAVIR POTASSIUM
     Indication: HIV infection
     Route: 048
  6. LAMIVUDINE [Suspect]
     Active Substance: LAMIVUDINE
     Indication: HIV infection
     Route: 005
  7. LOPINAVIR\RITONAVIR [Suspect]
     Active Substance: LOPINAVIR\RITONAVIR
     Indication: HIV infection
     Route: 048
  8. QUETIAPINE FUMARATE [Suspect]
     Active Substance: QUETIAPINE FUMARATE
     Indication: Bipolar disorder
     Route: 048
  9. SERTRALINE HYDROCHLORIDE [Suspect]
     Active Substance: SERTRALINE HYDROCHLORIDE
     Indication: Bipolar disorder
     Route: 048
  10. SERTRALINE HYDROCHLORIDE [Suspect]
     Active Substance: SERTRALINE HYDROCHLORIDE
     Route: 065
  11. VALPROIC ACID [Suspect]
     Active Substance: VALPROIC ACID
     Indication: Bipolar disorder
     Route: 065
  12. ZOPICLONE [Suspect]
     Active Substance: ZOPICLONE
     Indication: Bipolar disorder
     Route: 048
  13. ENFUVIRTIDE [Concomitant]
     Active Substance: ENFUVIRTIDE
     Indication: Product used for unknown indication

REACTIONS (5)
  - Depression [Fatal]
  - Drug interaction [Fatal]
  - Loss of personal independence in daily activities [Fatal]
  - Prescribed overdose [Fatal]
  - Intentional product use issue [Fatal]
